FAERS Safety Report 9925216 (Version 1)
Quarter: 2014Q1

REPORT INFORMATION
  Report Type: Spontaneous
  Country: TR (occurrence: TR)
  Receive Date: 20140226
  Receipt Date: 20140226
  Transmission Date: 20141002
  Serious: Yes (Other)
  Sender: FDA-Public Use
  Company Number: TR-PFIZER INC-2014051124

PATIENT
  Age: 34 Year
  Sex: Male

DRUGS (1)
  1. PREGABALIN [Suspect]
     Dosage: 15.600 MG, DAY (OVERALL 1.780 MG/DAY)

REACTIONS (19)
  - Intentional overdose [Unknown]
  - Drug dependence [Unknown]
  - Drug withdrawal syndrome [Unknown]
  - Suicidal ideation [Unknown]
  - Affective disorder [Unknown]
  - Depressed mood [Unknown]
  - Hallucination, visual [Unknown]
  - Aggression [Unknown]
  - Anxiety [Unknown]
  - Apathy [Unknown]
  - Decreased appetite [Unknown]
  - Palpitations [Unknown]
  - Tremor [Unknown]
  - Hyperhidrosis [Unknown]
  - Vomiting [Unknown]
  - Hypersomnia [Unknown]
  - Anhedonia [Unknown]
  - Euphoric mood [Unknown]
  - Grandiosity [Unknown]
